FAERS Safety Report 16391301 (Version 8)
Quarter: 2020Q2

REPORT INFORMATION
  Report Type: Report from Study
  Country: US (occurrence: US)
  Receive Date: 20190604
  Receipt Date: 20200513
  Transmission Date: 20200713
  Serious: Yes (Hospitalization, Other)
  Sender: FDA-Public Use
  Company Number: US-TAKEDA-2019TUS006051

PATIENT
  Sex: Male

DRUGS (9)
  1. IMBRUVICA [Concomitant]
     Active Substance: IBRUTINIB
     Dosage: UNK
     Route: 065
     Dates: start: 20190601
  2. MAGNESIUM                          /00082501/ [Concomitant]
     Active Substance: ALUMINUM HYDROXIDE\MAGNESIUM HYDROXIDE
     Dosage: UNK
     Route: 065
  3. PONATINIB [Suspect]
     Active Substance: PONATINIB
     Indication: LYMPHOCYTIC LEUKAEMIA
     Dosage: 15 MILLIGRAM, QD
     Route: 048
     Dates: start: 201912, end: 20200507
  4. ACYCLOVIR                          /00587301/ [Concomitant]
     Active Substance: ACYCLOVIR
     Dosage: 800 MILLIGRAM
     Route: 065
  5. PONATINIB [Suspect]
     Active Substance: PONATINIB
     Indication: ACUTE LYMPHOCYTIC LEUKAEMIA
     Dosage: 15 MILLIGRAM, QD
     Route: 048
     Dates: start: 20181227
  6. CARDIZEM CD [Concomitant]
     Active Substance: DILTIAZEM HYDROCHLORIDE
     Dosage: UNK
     Route: 065
  7. TOPROL XL [Concomitant]
     Active Substance: METOPROLOL SUCCINATE
     Dosage: UNK
     Route: 065
  8. LEVOTHYROXINE SODIUM. [Concomitant]
     Active Substance: LEVOTHYROXINE SODIUM
     Dosage: 200 MICROGRAM
     Route: 065
  9. REMERON [Concomitant]
     Active Substance: MIRTAZAPINE
     Dosage: UNK
     Route: 065

REACTIONS (49)
  - Pneumonia respiratory syncytial viral [Unknown]
  - Skin disorder [Recovering/Resolving]
  - Cell-mediated immune deficiency [Unknown]
  - Sleep apnoea syndrome [Unknown]
  - Wheezing [Unknown]
  - Posterior reversible encephalopathy syndrome [Unknown]
  - Hypertension [Unknown]
  - Product dose omission [Unknown]
  - Pulmonary hypertension [Unknown]
  - Muscular weakness [Unknown]
  - Oedema peripheral [Unknown]
  - Pain in extremity [Unknown]
  - Abdominal distension [Unknown]
  - Acute kidney injury [Unknown]
  - Dysstasia [Unknown]
  - Nervousness [Unknown]
  - Hyperkalaemia [Unknown]
  - Somnolence [Unknown]
  - Graft versus host disease [Unknown]
  - Pneumonia [Unknown]
  - Hypogammaglobulinaemia [Unknown]
  - Decreased appetite [Unknown]
  - Nausea [Unknown]
  - Fatigue [Unknown]
  - Respiratory failure [Unknown]
  - Physical deconditioning [Unknown]
  - Hyperglycaemia [Unknown]
  - Muscle spasms [Unknown]
  - Constipation [Unknown]
  - Staphylococcal infection [Unknown]
  - Postural orthostatic tachycardia syndrome [Unknown]
  - Cushingoid [Unknown]
  - Hypothyroidism [Unknown]
  - Asthenia [Unknown]
  - Erythema [Unknown]
  - Arthralgia [Unknown]
  - Depression [Unknown]
  - Blister [Unknown]
  - Seasonal allergy [Unknown]
  - Sinusitis [Unknown]
  - Gastrooesophageal reflux disease [Unknown]
  - Transaminases increased [Unknown]
  - Pain [Unknown]
  - Myalgia [Unknown]
  - Obliterative bronchiolitis [Unknown]
  - Anxiety [Unknown]
  - Hypomagnesaemia [Unknown]
  - Syncope [Unknown]
  - Off label use [Unknown]
